FAERS Safety Report 5465787-8 (Version None)
Quarter: 2007Q3

REPORT INFORMATION
  Report Type: 
  Country: None (occurrence: None)
  Receive Date: 20070924
  Receipt Date: 20070920
  Transmission Date: 20080115
  Serious: Yes (Other)
  Sender: FDA-Public Use
  Company Number: B0488130A

PATIENT
  Age: 58 Year
  Sex: Male

DRUGS (2)
  1. AUGMENTIN '125' [Suspect]
     Indication: PNEUMONIA
     Route: 048
     Dates: start: 20070828, end: 20070830
  2. ZITHROMAX [Concomitant]
     Indication: DRUG USE FOR UNKNOWN INDICATION
     Route: 065
     Dates: start: 20070830

REACTIONS (2)
  - OEDEMA PERIPHERAL [None]
  - TRANSAMINASES INCREASED [None]
